FAERS Safety Report 20628812 (Version 1)
Quarter: 2022Q1

REPORT INFORMATION
  Report Type: Spontaneous
  Country: JP (occurrence: JP)
  Receive Date: 20220323
  Receipt Date: 20220323
  Transmission Date: 20220424
  Serious: Yes (Hospitalization, Other)
  Sender: FDA-Public Use
  Company Number: JP-DSJP-DSJ-2022-109457

PATIENT
  Age: 79 Year
  Sex: Female
  Weight: 49 kg

DRUGS (16)
  1. OLMESARTAN MEDOXOMIL [Suspect]
     Active Substance: OLMESARTAN MEDOXOMIL
     Indication: Hypertension
     Dosage: 20 MG, QD, AFTER BREAKFAST
     Route: 048
  2. EDOXABAN TOSYLATE [Suspect]
     Active Substance: EDOXABAN TOSYLATE
     Indication: Atrial flutter
     Dosage: 30 MG, QD, AFTER BREAKFAST
     Route: 048
  3. EDOXABAN TOSYLATE [Suspect]
     Active Substance: EDOXABAN TOSYLATE
     Indication: Atrial fibrillation
  4. BISOPROLOL FUMARATE [Concomitant]
     Active Substance: BISOPROLOL FUMARATE
     Dosage: 1.25MG/DAY
     Route: 048
  5. BISOPROLOL FUMARATE [Concomitant]
     Active Substance: BISOPROLOL FUMARATE
     Dosage: 5 MG, QD
     Route: 048
  6. VERAPAMIL HYDROCHLORIDE [Concomitant]
     Active Substance: VERAPAMIL HYDROCHLORIDE
     Dosage: 40 MG, TID, AFTER EACH MEAL
     Route: 048
  7. FUROSEMIDE [Concomitant]
     Active Substance: FUROSEMIDE
     Dosage: UNK
     Route: 048
  8. FUROSEMIDE [Concomitant]
     Active Substance: FUROSEMIDE
     Dosage: 40 MG, QD, AFTER BREAKFAST
     Route: 048
  9. AZOSEMIDE [Concomitant]
     Active Substance: AZOSEMIDE
     Dosage: 30 MG, QD, AFTER BREAKFAST
     Route: 048
  10. PREDNISOLONE [Concomitant]
     Active Substance: PREDNISOLONE
     Dosage: 10 MG, QD, AFTER BREAKFAST
     Route: 048
  11. TACROLIMUS [Concomitant]
     Active Substance: TACROLIMUS
     Dosage: 3 MG, QD, AFTER DINNER
     Route: 048
  12. AMLODIPINE BESYLATE [Concomitant]
     Active Substance: AMLODIPINE BESYLATE
     Dosage: 5 MG, QD, AFTER BREAKFAST
     Route: 048
  13. ESOMEPRAZOLE MAGNESIUM [Concomitant]
     Active Substance: ESOMEPRAZOLE MAGNESIUM
     Dosage: 20 MG, QD, AFTER BREAKFAST
     Route: 048
  14. CELECOXIB [Concomitant]
     Active Substance: CELECOXIB
     Dosage: 100 MG, QD, AFTER DINNER
     Route: 048
  15. ELDECALCITOL [Concomitant]
     Active Substance: ELDECALCITOL
     Dosage: 0.75 UG, QD, AFTER BREAKFAST
     Route: 048
  16. SIMVASTATIN [Concomitant]
     Active Substance: SIMVASTATIN
     Dosage: 5 MG, QD, AFTER DINNER
     Route: 048

REACTIONS (5)
  - Gastric ulcer haemorrhage [Unknown]
  - Shock haemorrhagic [Unknown]
  - Renal impairment [Unknown]
  - Sinus node dysfunction [Unknown]
  - Cardiac failure congestive [Unknown]
